FAERS Safety Report 10043216 (Version 1)
Quarter: 2014Q1

REPORT INFORMATION
  Report Type: Spontaneous
  Country: US (occurrence: None)
  Receive Date: 20140327
  Receipt Date: 20140327
  Transmission Date: 20141002
  Serious: Yes (Other)
  Sender: FDA-Public Use
  Company Number: None

PATIENT
  Age: 23 Year
  Sex: Male
  Weight: 83.92 kg

DRUGS (1)
  1. MIXED AMPHETAMINE SALTS [Suspect]
     Indication: ATTENTION DEFICIT/HYPERACTIVITY DISORDER
     Dosage: 1 THREE TIMES DAILY TAKEN BY MOUTH
     Route: 048
     Dates: start: 20140220, end: 20140325

REACTIONS (7)
  - Confusional state [None]
  - Headache [None]
  - Bradyphrenia [None]
  - Disturbance in attention [None]
  - Frustration [None]
  - Depressed mood [None]
  - Product substitution issue [None]
